FAERS Safety Report 8156272-3 (Version None)
Quarter: 2012Q1

REPORT INFORMATION
  Report Type: 
  Country: None (occurrence: None)
  Receive Date: 20120103
  Receipt Date: 20111122
  Transmission Date: 20120608
  Serious: No
  Sender: FDA-Public Use
  Company Number: AE-2011-002061

PATIENT
  Age: 36 Year
  Sex: Male
  Weight: 112.4921 kg

DRUGS (4)
  1. PEGASYS [Concomitant]
  2. LEVOXYL [Concomitant]
  3. INCIVEK [Suspect]
     Dosage: 2250 MG (750 MG, 3 IN 1 D), ORAL
     Route: 048
     Dates: start: 20110718
  4. RIBAVIRIN [Concomitant]

REACTIONS (2)
  - EYE PRURITUS [None]
  - BLISTER [None]
